FAERS Safety Report 20367662 (Version 1)
Quarter: 2022Q1

REPORT INFORMATION
  Report Type: Spontaneous
  Country: FR (occurrence: FR)
  Receive Date: 20220124
  Receipt Date: 20220124
  Transmission Date: 20220423
  Serious: Yes (Other)
  Sender: FDA-Public Use
  Company Number: None

PATIENT
  Age: 73 Year
  Sex: Female
  Weight: 96 kg

DRUGS (13)
  1. RAMIPRIL [Suspect]
     Active Substance: RAMIPRIL
     Indication: Hypertension
     Route: 048
     Dates: end: 20211119
  2. PANTOPRAZOLE [Suspect]
     Active Substance: PANTOPRAZOLE
     Indication: Product used for unknown indication
     Route: 048
     Dates: start: 20211115
  3. CELIPROLOL [Suspect]
     Active Substance: CELIPROLOL
     Indication: Hypertension
     Route: 048
     Dates: end: 20211118
  4. KARDEGIC [Suspect]
     Active Substance: ASPIRIN DL-LYSINE
     Indication: Product used for unknown indication
     Route: 048
     Dates: start: 20211116, end: 20211119
  5. CLOBAZAM [Suspect]
     Active Substance: CLOBAZAM
     Indication: Epilepsy
     Route: 048
     Dates: start: 20211114
  6. VIMPAT [Suspect]
     Active Substance: LACOSAMIDE
     Indication: Epilepsy
     Dosage: STRENGTH: 100 MG, 150MG 2/D
     Route: 048
  7. CLONIDINE [Concomitant]
     Active Substance: CLONIDINE
  8. IMATINIB MESYLATE [Concomitant]
     Active Substance: IMATINIB MESYLATE
  9. KEPPRA [Concomitant]
     Active Substance: LEVETIRACETAM
  10. PAROXETINE HYDROCHLORIDE [Concomitant]
     Active Substance: PAROXETINE HYDROCHLORIDE
  11. PRAVASTATIN SODIUM [Concomitant]
     Active Substance: PRAVASTATIN SODIUM
  12. SPIRONOLACTONE [Concomitant]
     Active Substance: SPIRONOLACTONE
  13. TRANXENE [Concomitant]
     Active Substance: CLORAZEPATE DIPOTASSIUM

REACTIONS (1)
  - Atrial fibrillation [Not Recovered/Not Resolved]

NARRATIVE: CASE EVENT DATE: 20211118
